FAERS Safety Report 20433429 (Version 1)
Quarter: 2022Q1

REPORT INFORMATION
  Report Type: Spontaneous
  Country: DE (occurrence: DE)
  Receive Date: 20220205
  Receipt Date: 20220205
  Transmission Date: 20220423
  Serious: Yes (Hospitalization, Other)
  Sender: FDA-Public Use
  Company Number: DE-ADRED-07028-01

PATIENT
  Age: 80 Year
  Sex: Female

DRUGS (16)
  1. RISPERDAL [Suspect]
     Active Substance: RISPERIDONE
     Indication: Product used for unknown indication
     Dosage: 0.5 MG, 1-1-1-0
     Route: 065
  2. PHENPROCOUMON [Concomitant]
     Active Substance: PHENPROCOUMON
  3. TORSEMIDE [Concomitant]
     Active Substance: TORSEMIDE
     Dosage: 5 MG
  4. BENSERAZIDE\LEVODOPA [Concomitant]
     Active Substance: BENSERAZIDE\LEVODOPA
     Dosage: 12.5|50 MG,
  5. VENLAFAXINE [Concomitant]
     Active Substance: VENLAFAXINE HYDROCHLORIDE
     Dosage: 150 MG
  6. DEXPANTHENOL [Concomitant]
     Active Substance: DEXPANTHENOL
     Dosage: IF NEEDED
  7. LACTULOSE [Concomitant]
     Active Substance: LACTULOSE
  8. DIGITOXIN [Concomitant]
     Active Substance: DIGITOXIN
  9. LERCANIDIPINE [Concomitant]
     Active Substance: LERCANIDIPINE
     Route: 065
  10. MIRTAZAPINE [Concomitant]
     Active Substance: MIRTAZAPINE
  11. MIRTAZAPINE [Concomitant]
     Active Substance: MIRTAZAPINE
  12. MELPERONE [Concomitant]
     Active Substance: MELPERONE
  13. LEVOTHYROXINE SODIUM [Concomitant]
     Active Substance: LEVOTHYROXINE SODIUM
  14. LEVOTHYROXINE SODIUM [Concomitant]
     Active Substance: LEVOTHYROXINE SODIUM
     Dosage: 100 G,
  15. METAMIZOLE [Concomitant]
     Active Substance: METAMIZOLE
     Dosage: IF NEEDED
  16. BISOPROLOL [Concomitant]
     Active Substance: BISOPROLOL
     Dosage: 1-0-0-0

REACTIONS (10)
  - Pulmonary vein occlusion [Unknown]
  - General physical health deterioration [Unknown]
  - Systemic infection [Unknown]
  - Atrial fibrillation [Unknown]
  - Tachycardia [Unknown]
  - Tremor [Unknown]
  - Pyrexia [Unknown]
  - Restlessness [Unknown]
  - Urinary tract infection [Unknown]
  - Dyspnoea [Unknown]
